FAERS Safety Report 23648064 (Version 1)
Quarter: 2024Q1

REPORT INFORMATION
  Report Type: Spontaneous
  Country: PT (occurrence: PT)
  Receive Date: 20240319
  Receipt Date: 20240319
  Transmission Date: 20240410
  Serious: Yes (Life-Threatening)
  Sender: FDA-Public Use
  Company Number: None

PATIENT
  Age: 17 Year
  Sex: Male

DRUGS (6)
  1. ROPIVACAINE [Suspect]
     Active Substance: ROPIVACAINE
     Indication: Nerve block
     Dosage: 0.2% 10+20ML
     Route: 065
     Dates: start: 20231123, end: 20231123
  2. MIDAZOLAM [Suspect]
     Active Substance: MIDAZOLAM
     Indication: Anaesthesia
     Dosage: 2 MILLIGRAM, 1 TOTAL (2 MG, SINGLE DOSE)
     Route: 042
     Dates: start: 20231123
  3. DEXAMETHASONE [Suspect]
     Active Substance: DEXAMETHASONE
     Indication: Anaesthesia
     Dosage: 8 MILLIGRAM, 1 TOTAL (8 MG, SINGLE DOSE)
     Route: 042
     Dates: start: 20231123, end: 20231123
  4. FENTANYL [Suspect]
     Active Substance: FENTANYL\FENTANYL CITRATE
     Indication: Anaesthesia
     Dosage: 50 MICROGRAM
     Route: 042
     Dates: start: 20231123, end: 20231123
  5. KETOROLAC [Suspect]
     Active Substance: KETOROLAC TROMETHAMINE
     Indication: Anaesthesia
     Dosage: 30 MILLIGRAM, 1 TOTAL (30MG, SINGLE DOSE)
     Route: 042
     Dates: start: 20231123, end: 20231123
  6. CEFAZOLIN SODIUM [Suspect]
     Active Substance: CEFAZOLIN SODIUM
     Indication: Antibiotic prophylaxis
     Dosage: 2 GRAM, 1 TOTAL (2G, SINGLE DOSE)
     Route: 042
     Dates: start: 20231123, end: 20231123

REACTIONS (1)
  - Anaphylactic reaction [Recovered/Resolved]

NARRATIVE: CASE EVENT DATE: 20231123
